FAERS Safety Report 6029043-1 (Version None)
Quarter: 2008Q4

REPORT INFORMATION
  Report Type: 
  Country: None (occurrence: None)
  Receive Date: 20081222
  Receipt Date: 20081106
  Transmission Date: 20090506
  Serious: No
  Sender: FDA-Public Use
  Company Number: ALL1-2008-03248

PATIENT
  Sex: Male
  Weight: 27.2 kg

DRUGS (3)
  1. VYVANSE [Suspect]
     Indication: ATTENTION DEFICIT/HYPERACTIVITY DISORDER
     Dosage: 30 MG, 1X/DAY:QD, ORAL;  60 MG, 1X/DAY:QD, ORAL ;  40 MG, 1X/DAY:QD, ORAL
     Route: 048
     Dates: start: 20081001, end: 20081001
  2. VYVANSE [Suspect]
     Indication: ATTENTION DEFICIT/HYPERACTIVITY DISORDER
     Dosage: 30 MG, 1X/DAY:QD, ORAL;  60 MG, 1X/DAY:QD, ORAL ;  40 MG, 1X/DAY:QD, ORAL
     Route: 048
     Dates: end: 20081001
  3. VYVANSE [Suspect]
     Indication: ATTENTION DEFICIT/HYPERACTIVITY DISORDER
     Dosage: 30 MG, 1X/DAY:QD, ORAL;  60 MG, 1X/DAY:QD, ORAL ;  40 MG, 1X/DAY:QD, ORAL
     Route: 048
     Dates: start: 20081001

REACTIONS (3)
  - DRUG EFFECT INCREASED [None]
  - FLAT AFFECT [None]
  - INSOMNIA [None]
